FAERS Safety Report 25649222 (Version 1)
Quarter: 2025Q3

REPORT INFORMATION
  Report Type: Spontaneous
  Country: CO (occurrence: CO)
  Receive Date: 20250806
  Receipt Date: 20250806
  Transmission Date: 20251020
  Serious: Yes (Hospitalization)
  Sender: BAYER HEALTHCARE PHARMACEUTICALS INC.
  Company Number: CO-BAYER-2025A103373

PATIENT
  Sex: Female

DRUGS (1)
  1. ADEMPAS [Suspect]
     Active Substance: RIOCIGUAT
     Indication: Pulmonary arterial hypertension
     Dosage: 2.5 MG, Q8HR
     Route: 048
     Dates: start: 2020

REACTIONS (10)
  - Syncope [Recovering/Resolving]
  - Cold sweat [Recovering/Resolving]
  - Dysstasia [Recovering/Resolving]
  - Inappropriate schedule of product administration [None]
  - Fatigue [Recovering/Resolving]
  - Gait disturbance [Recovering/Resolving]
  - Dyspnoea [Recovering/Resolving]
  - Anosognosia [Recovering/Resolving]
  - Allergic respiratory disease [Recovering/Resolving]
  - Hypersensitivity [Recovering/Resolving]

NARRATIVE: CASE EVENT DATE: 20250201
